FAERS Safety Report 8954872 (Version 2)
Quarter: 2012Q4

REPORT INFORMATION
  Report Type: 
  Country: US (occurrence: US)
  Receive Date: 20121207
  Receipt Date: 20121219
  Transmission Date: 20130627
  Serious: Yes (Other)
  Sender: FDA-Public Use
  Company Number: CHPA2012US024935

PATIENT
  Sex: Female

DRUGS (2)
  1. PREVACID 24HR 15MG [Suspect]
     Indication: DYSPEPSIA
     Dosage: 15 mg every day
     Route: 048
  2. TUMS [Concomitant]

REACTIONS (7)
  - Glaucoma [Not Recovered/Not Resolved]
  - Visual impairment [Unknown]
  - Back disorder [Unknown]
  - Injury [Unknown]
  - Disease recurrence [Unknown]
  - Drug ineffective for unapproved indication [Unknown]
  - Incorrect drug administration duration [Unknown]
